FAERS Safety Report 24211294 (Version 1)
Quarter: 2024Q3

REPORT INFORMATION
  Report Type: Spontaneous
  Country: MX (occurrence: MX)
  Receive Date: 20240814
  Receipt Date: 20240814
  Transmission Date: 20241017
  Serious: Yes (Other)
  Sender: JAZZ
  Company Number: MX-PHARMAMAR-2024PM000577

PATIENT
  Age: 71 Year
  Sex: Male

DRUGS (1)
  1. ZEPZELCA [Suspect]
     Active Substance: LURBINECTEDIN
     Indication: Small cell lung cancer
     Dosage: 5 CYCLES

REACTIONS (5)
  - Disease progression [Unknown]
  - General physical health deterioration [Unknown]
  - Fatigue [Unknown]
  - Weight decreased [Unknown]
  - Therapy cessation [Unknown]
